FAERS Safety Report 11583496 (Version 1)
Quarter: 2015Q3

REPORT INFORMATION
  Report Type: Spontaneous
  Country: US (occurrence: None)
  Receive Date: 20150930
  Receipt Date: 20150930
  Transmission Date: 20151125
  Serious: Yes (Hospitalization)
  Sender: FDA-Public Use
  Company Number: None

PATIENT
  Age: 52 Year
  Sex: Male
  Weight: 76.2 kg

DRUGS (1)
  1. TAXOTERE [Suspect]
     Active Substance: DOCETAXEL
     Dates: end: 20150610

REACTIONS (10)
  - Nausea [None]
  - Vomiting [None]
  - Stoma site infection [None]
  - Throat tightness [None]
  - Dyspnoea [None]
  - Local swelling [None]
  - Tongue disorder [None]
  - Stridor [None]
  - Discomfort [None]
  - Salivary hypersecretion [None]

NARRATIVE: CASE EVENT DATE: 20150617
